FAERS Safety Report 24048178 (Version 1)
Quarter: 2024Q3

REPORT INFORMATION
  Report Type: Spontaneous
  Country: US (occurrence: US)
  Receive Date: 20240703
  Receipt Date: 20240703
  Transmission Date: 20241017
  Serious: No
  Sender: SANOFI AVENTIS
  Company Number: US-SA-SAC20240702000289

PATIENT
  Age: 53 Year
  Sex: Female
  Weight: 90 kg

DRUGS (1)
  1. DUPIXENT [Suspect]
     Active Substance: DUPILUMAB
     Indication: Asthma
     Dosage: 200MG EVERY 14 DAYS
     Route: 058

REACTIONS (3)
  - Pharyngitis streptococcal [Unknown]
  - Lymphadenopathy [Unknown]
  - Odynophagia [Unknown]

NARRATIVE: CASE EVENT DATE: 20240101
